FAERS Safety Report 5644248-7 (Version None)
Quarter: 2008Q1

REPORT INFORMATION
  Report Type: 
  Country: None (occurrence: None)
  Receive Date: 20080227
  Receipt Date: 20080227
  Transmission Date: 20080703
  Serious: Yes (Life-Threatening, Other)
  Sender: FDA-Public Use
  Company Number: None

PATIENT
  Age: 38 Year
  Sex: Male
  Weight: 95.2554 kg

DRUGS (1)
  1. CHANTIX [Suspect]
     Indication: SMOKING CESSATION THERAPY
     Dosage: PER DIRECTIONS PER DIRECTIONS PO
     Route: 048
     Dates: start: 20071001, end: 20071130

REACTIONS (6)
  - ANGER [None]
  - CRYING [None]
  - FEELING ABNORMAL [None]
  - NIGHTMARE [None]
  - SCREAMING [None]
  - SUICIDAL IDEATION [None]
